FAERS Safety Report 7137020-2 (Version None)
Quarter: 2010Q4

REPORT INFORMATION
  Report Type: 
  Country: None (occurrence: None)
  Receive Date: 20101206
  Receipt Date: 20020319
  Transmission Date: 20110411
  Serious: Yes (Death)
  Sender: FDA-Public Use
  Company Number: US-ACTELION-A-US2002-00086

PATIENT
  Sex: Male
  Weight: 82.54 kg

DRUGS (9)
  1. TRACLEER [Suspect]
     Indication: PULMONARY ARTERIAL HYPERTENSION
     Dosage: 62.5 MG, BID
     Route: 048
     Dates: start: 20020207, end: 20020319
  2. PLAVIX [Concomitant]
     Dosage: 75 MG, QD
  3. GLUCOPHAGE [Concomitant]
     Dosage: 500 MG, QD
  4. PREDNISONE [Concomitant]
     Dosage: 5 MG, QD
  5. FOSAMAX [Concomitant]
     Dosage: 40 MG, Q1WEEK
  6. K-DUR [Concomitant]
     Dosage: 10 MEQ, QD
  7. PREVACID [Concomitant]
     Dosage: 30 MG, QD
  8. ACTIMMUNE [Concomitant]
     Dosage: 1 CC, Q3WEEK
     Route: 058
  9. GLIPIZIDE [Concomitant]
     Dosage: 5 MG, QD

REACTIONS (1)
  - DEATH [None]
